FAERS Safety Report 4285102-5 (Version None)
Quarter: 2004Q1

REPORT INFORMATION
  Report Type: 
  Country: None (occurrence: None)
  Receive Date: 20040204
  Receipt Date: 20040126
  Transmission Date: 20041129
  Serious: Yes (Hospitalization)
  Sender: FDA-Public Use
  Company Number: US-GLAXOSMITHKLINE-A0495260A

PATIENT
  Age: 59 Year
  Sex: Female

DRUGS (8)
  1. MELPHALAN [Suspect]
     Indication: MULTIPLE MYELOMA
     Route: 042
     Dates: start: 20031021, end: 20031021
  2. THALIDOMIDE [Suspect]
     Indication: MULTIPLE MYELOMA
     Route: 048
     Dates: start: 20030608, end: 20030623
  3. ZOLOFT [Concomitant]
  4. LISINOPRIL [Concomitant]
  5. METOPROLOL [Concomitant]
  6. ACYCLOVIR [Concomitant]
  7. EPOGEN [Concomitant]
  8. REGLAN [Concomitant]

REACTIONS (7)
  - C-REACTIVE PROTEIN [None]
  - MUCOSAL INFLAMMATION [None]
  - NEUTROPENIA [None]
  - OESOPHAGITIS [None]
  - PANCYTOPENIA [None]
  - SINUSITIS [None]
  - STAPHYLOCOCCAL INFECTION [None]
